FAERS Safety Report 4521938-0 (Version None)
Quarter: 2004Q4

REPORT INFORMATION
  Report Type: 
  Country: None (occurrence: None)
  Receive Date: 20041207
  Receipt Date: 20041122
  Transmission Date: 20050328
  Serious: Yes (Death, Hospitalization)
  Sender: FDA-Public Use
  Company Number: 2004-00388

PATIENT
  Age: 81 Year
  Sex: Female
  Weight: 44.4 kg

DRUGS (2)
  1. VELCADE [Suspect]
     Indication: MULTIPLE MYELOMA
     Dosage: SEE IMAGE
     Route: 042
     Dates: start: 20040524, end: 20040823
  2. VELCADE [Suspect]
     Indication: MULTIPLE MYELOMA
     Dosage: SEE IMAGE
     Route: 042
     Dates: start: 20040823, end: 20040823

REACTIONS (22)
  - ACCIDENTAL OVERDOSE [None]
  - ARRHYTHMIA [None]
  - CARDIAC FAILURE [None]
  - CEREBRAL INFARCTION [None]
  - CLOSTRIDIAL INFECTION [None]
  - COMA [None]
  - DEEP VEIN THROMBOSIS [None]
  - DIARRHOEA [None]
  - GASTROINTESTINAL HAEMORRHAGE [None]
  - HAEMOGLOBIN DECREASED [None]
  - HAEMORRHAGIC STROKE [None]
  - HYPOTENSION [None]
  - INFARCTION [None]
  - MEDICATION ERROR [None]
  - METABOLIC ENCEPHALOPATHY [None]
  - PERIPHERAL EMBOLISM [None]
  - PNEUMONIA ASPIRATION [None]
  - PULMONARY EMBOLISM [None]
  - RENAL FAILURE [None]
  - RESPIRATORY DISTRESS [None]
  - SINUS BRADYCARDIA [None]
  - THROMBOCYTOPENIA [None]
